FAERS Safety Report 4765953-0 (Version None)
Quarter: 2005Q3

REPORT INFORMATION
  Report Type: 
  Country: None (occurrence: None)
  Receive Date: 20050908
  Receipt Date: 20050908
  Transmission Date: 20060218
  Serious: Yes (Death, Life-Threatening, Hospitalization)
  Sender: FDA-Public Use
  Company Number: None

PATIENT
  Age: 85 Year
  Sex: Male
  Weight: 167.7 kg

DRUGS (8)
  1. FLECAINIDE [Suspect]
     Indication: ARRHYTHMIA
     Dosage: 100 MG PO BID  {{1 WEEK}
     Route: 048
     Dates: start: 20050618, end: 20050619
  2. METOPROLOL [Concomitant]
  3. CARDIZEM CD [Concomitant]
  4. COUMADIN [Concomitant]
  5. LASIX [Concomitant]
  6. HYDROLAZINE [Concomitant]
  7. CLONIDINE [Concomitant]
  8. DARVOCET [Concomitant]

REACTIONS (6)
  - ATRIAL FIBRILLATION [None]
  - BRADYCARDIA [None]
  - CARDIAC ARREST [None]
  - CONVULSION [None]
  - HYPOTENSION [None]
  - MYOCARDIAL INFARCTION [None]
